FAERS Safety Report 8124116-1 (Version None)
Quarter: 2012Q1

REPORT INFORMATION
  Report Type: 
  Country: None (occurrence: None)
  Receive Date: 20120209
  Receipt Date: 20120202
  Transmission Date: 20120608
  Serious: Yes (Hospitalization, Other)
  Sender: FDA-Public Use
  Company Number: BR-US-EMD SERONO, INC.-7032192

PATIENT
  Sex: Female

DRUGS (10)
  1. REBIF [Suspect]
     Dates: start: 20031211
  2. SIMETHICONE [Concomitant]
     Indication: PRODUCT USED FOR UNKNOWN INDICATION
  3. LEVOTHYROXINE SODIUM [Concomitant]
     Indication: PRODUCT USED FOR UNKNOWN INDICATION
  4. LISADOR [Concomitant]
     Indication: PRODUCT USED FOR UNKNOWN INDICATION
  5. REBIF [Suspect]
     Indication: RELAPSING-REMITTING MULTIPLE SCLEROSIS
     Dates: start: 20020501
  6. MANTIDAN [Concomitant]
     Indication: PRODUCT USED FOR UNKNOWN INDICATION
  7. ALPRAZOLAM [Concomitant]
     Indication: PRODUCT USED FOR UNKNOWN INDICATION
  8. LYRICA [Concomitant]
     Indication: PRODUCT USED FOR UNKNOWN INDICATION
  9. DYPIRONE (DIPYRONE) [Concomitant]
     Indication: PRODUCT USED FOR UNKNOWN INDICATION
  10. MOTRIN [Concomitant]
     Indication: PRODUCT USED FOR UNKNOWN INDICATION

REACTIONS (6)
  - TRACHEOSTOMY [None]
  - URINARY TRACT INFECTION [None]
  - PYREXIA [None]
  - HYPERGLYCAEMIA [None]
  - GAIT DISTURBANCE [None]
  - INJECTION SITE NODULE [None]
